FAERS Safety Report 24883913 (Version 1)
Quarter: 2025Q1

REPORT INFORMATION
  Report Type: Spontaneous
  Country: US (occurrence: US)
  Receive Date: 20250124
  Receipt Date: 20250124
  Transmission Date: 20250408
  Serious: No
  Sender: GE HEALTHCARE
  Company Number: US-GE HEALTHCARE-2025CSU000158

PATIENT
  Age: 13 Year
  Sex: Male

DRUGS (2)
  1. MYOVIEW [Suspect]
     Active Substance: TECHNETIUM TC-99M TETROFOSMIN
     Indication: Cardiac imaging procedure
     Route: 065
     Dates: start: 20241227, end: 20241227
  2. TECHNETIUM TC-99M [Concomitant]
     Active Substance: TECHNETIUM TC-99M

REACTIONS (2)
  - Drug ineffective [Recovered/Resolved]
  - No adverse event [Recovered/Resolved]

NARRATIVE: CASE EVENT DATE: 20241227
